FAERS Safety Report 8576843 (Version 2)
Quarter: 2014Q2

REPORT INFORMATION
  Report Type: Spontaneous
  Country: US (occurrence: US)
  Receive Date: 20120524
  Receipt Date: 20140605
  Transmission Date: 20141212
  Serious: No
  Sender: FDA-Public Use
  Company Number: US-ASTRAZENECA-2012SE31031

PATIENT
  Age: 10388 Day
  Sex: Female
  Weight: 30.4 kg

DRUGS (3)
  1. NEXIUM [Suspect]
     Indication: GASTROOESOPHAGEAL REFLUX DISEASE
     Route: 048
     Dates: start: 2004
  2. LOVASTATIN [Concomitant]
     Indication: BLOOD CHOLESTEROL ABNORMAL
  3. LORATIDINE [Concomitant]
     Indication: MULTIPLE ALLERGIES

REACTIONS (2)
  - Malaise [Unknown]
  - Drug dose omission [Not Recovered/Not Resolved]
